FAERS Safety Report 5802525-0 (Version None)
Quarter: 2008Q3

REPORT INFORMATION
  Report Type: 
  Country: None (occurrence: None)
  Receive Date: 20080708
  Receipt Date: 20080701
  Transmission Date: 20090109
  Serious: Yes (Other)
  Sender: FDA-Public Use
  Company Number: US-JNJFOC-20080602591

PATIENT
  Sex: Male

DRUGS (1)
  1. FLOXIN [Suspect]
     Indication: PNEUMONIA
     Route: 065

REACTIONS (14)
  - ARTHROPATHY [None]
  - BLOOD CALCIUM ABNORMAL [None]
  - BLOOD COUNT ABNORMAL [None]
  - COLLAGEN-VASCULAR DISEASE [None]
  - DENTAL CARIES [None]
  - ELECTROCARDIOGRAM QT PROLONGED [None]
  - FIBROMYALGIA [None]
  - GASTROINTESTINAL DISORDER [None]
  - HEPATIC LESION [None]
  - MUSCULAR WEAKNESS [None]
  - NEPHROLITHIASIS [None]
  - TENDON RUPTURE [None]
  - VISUAL IMPAIRMENT [None]
  - WHITE BLOOD CELL DISORDER [None]
